FAERS Safety Report 7167734-X (Version None)
Quarter: 2010Q4

REPORT INFORMATION
  Report Type: 
  Country: None (occurrence: None)
  Receive Date: 20101216
  Receipt Date: 20100917
  Transmission Date: 20110411
  Serious: No
  Sender: FDA-Public Use
  Company Number: A0881716A

PATIENT
  Age: 65 Year
  Sex: Female

DRUGS (1)
  1. NICOTINE POLACRILEX [Suspect]
     Dates: start: 20100913, end: 20100915

REACTIONS (4)
  - DIARRHOEA [None]
  - HEADACHE [None]
  - NAUSEA [None]
  - VOMITING [None]
